FAERS Safety Report 25099827 (Version 1)
Quarter: 2025Q1

REPORT INFORMATION
  Report Type: Spontaneous
  Country: US (occurrence: None)
  Receive Date: 20250319
  Receipt Date: 20250319
  Transmission Date: 20250408
  Serious: No
  Sender: FDA-CTU
  Company Number: None

PATIENT
  Age: 72 Year
  Sex: Male

DRUGS (1)
  1. LENALIDOMIDE [Suspect]
     Active Substance: LENALIDOMIDE
     Indication: Plasma cell myeloma
     Dosage: 25MG QD ORAL ?
     Route: 048
     Dates: start: 20161101

REACTIONS (5)
  - Lower gastrointestinal haemorrhage [None]
  - Hiatus hernia [None]
  - Diverticulum intestinal [None]
  - Haemorrhoids [None]
  - Diverticulum intestinal haemorrhagic [None]

NARRATIVE: CASE EVENT DATE: 20250307
